FAERS Safety Report 7503728-X (Version None)
Quarter: 2011Q2

REPORT INFORMATION
  Report Type: 
  Country: None (occurrence: None)
  Receive Date: 20110525
  Receipt Date: 20110519
  Transmission Date: 20111010
  Serious: Yes (Other)
  Sender: FDA-Public Use
  Company Number: US-PFIZER INC-2011109222

PATIENT
  Age: 62 Year
  Sex: Female

DRUGS (4)
  1. CYCLOPHOSPHAMIDE [Suspect]
     Indication: BREAST CANCER
     Dosage: UNK
     Route: 042
     Dates: start: 20100101, end: 20100101
  2. PREDNISONE [Suspect]
  3. ADRIAMYCIN PFS [Suspect]
     Indication: BREAST CANCER
     Dosage: UNK
     Route: 041
     Dates: start: 20100101, end: 20100101
  4. TAXOTERE [Suspect]
     Indication: BREAST CANCER
     Dosage: UNK
     Route: 042
     Dates: start: 20100101, end: 20100101

REACTIONS (2)
  - WEIGHT INCREASED [None]
  - PULMONARY TOXICITY [None]
